FAERS Safety Report 11624367 (Version 1)
Quarter: 2015Q4

REPORT INFORMATION
  Report Type: Spontaneous
  Country: US (occurrence: None)
  Receive Date: 20151009
  Receipt Date: 20151009
  Transmission Date: 20160304
  Serious: No
  Sender: FDA-Public Use
  Company Number: None

PATIENT
  Age: 30 Year
  Sex: Male
  Weight: 106 kg

DRUGS (1)
  1. ACETYLCYSTEINE 200 MG/ML [Suspect]
     Active Substance: ACETYLCYSTEINE
     Indication: LIVER INJURY
     Dosage: 1,590
     Route: 042
     Dates: start: 20151007, end: 20151008

REACTIONS (3)
  - Pruritus [None]
  - Urticaria [None]
  - Flushing [None]

NARRATIVE: CASE EVENT DATE: 20151007
